FAERS Safety Report 8624530-1 (Version None)
Quarter: 2012Q3

REPORT INFORMATION
  Report Type: 
  Country: None (occurrence: None)
  Receive Date: 20120827
  Receipt Date: 20120822
  Transmission Date: 20120928
  Serious: Yes (Other)
  Sender: FDA-Public Use
  Company Number: US-PFIZER INC-2012175042

PATIENT
  Age: 56 Year
  Sex: Female
  Weight: 132 kg

DRUGS (13)
  1. NEURONTIN [Suspect]
     Dosage: UNK
  2. LANTUS [Concomitant]
     Indication: TYPE 2 DIABETES MELLITUS
     Dosage: 34 IU, DAILY
  3. VICTOZA [Concomitant]
     Indication: TYPE 2 DIABETES MELLITUS
     Dosage: 0.6 MG, DAILY
  4. SINGULAIR [Concomitant]
     Indication: ASTHMA
     Dosage: 10 MG, DAILY
  5. HYDROCHLOROTHIAZIDE [Concomitant]
     Indication: HYPERTENSION
     Dosage: 20 MG, DAILY
  6. GABAPENTIN [Suspect]
     Indication: DIABETIC NEUROPATHY
     Dosage: 300 MG, DAILY
     Dates: start: 20110701
  7. VENTOLIN HFA [Concomitant]
     Indication: ASTHMA
     Dosage: TWO PUFFS OF UNKNOWN DOSE AS NEEDED
  8. VENLAFAXINE HCL [Suspect]
     Indication: DIABETIC NEUROPATHY
     Dosage: UNK
     Dates: start: 20120301, end: 20120501
  9. LOTENSIN [Concomitant]
     Indication: HYPERTENSION
     Dosage: 20 MG, 2X/DAY
  10. NOVOLOG [Concomitant]
     Indication: TYPE 2 DIABETES MELLITUS
     Dosage: 42 IU, DAILY
  11. EFFEXOR [Suspect]
     Dosage: UNK
  12. GABAPENTIN [Suspect]
     Dosage: 600 MG, 3X/DAY
     Dates: end: 20120301
  13. ADVAIR DISKUS 100/50 [Concomitant]
     Indication: ASTHMA
     Dosage: UNK, 2X/DAY

REACTIONS (9)
  - DRUG INEFFECTIVE [None]
  - SEDATION [None]
  - DISORIENTATION [None]
  - FATIGUE [None]
  - SLUGGISHNESS [None]
  - SOMNOLENCE [None]
  - UNRESPONSIVE TO STIMULI [None]
  - FEELING ABNORMAL [None]
  - DISTURBANCE IN ATTENTION [None]
